FAERS Safety Report 5306328-5 (Version None)
Quarter: 2007Q2

REPORT INFORMATION
  Report Type: 
  Country: None (occurrence: None)
  Receive Date: 20070424
  Receipt Date: 20070418
  Transmission Date: 20071010
  Serious: Yes (Hospitalization)
  Sender: FDA-Public Use
  Company Number: US-BOEHRINGER INGELHEIM PHARMACEUTICALS, INC.-2007-BP-04086BP

PATIENT
  Age: 88 Year
  Sex: Male

DRUGS (14)
  1. AGGRENOX [Suspect]
     Indication: CEREBROVASCULAR ACCIDENT PROPHYLAXIS
     Route: 048
     Dates: start: 20030101
  2. LUPRON [Concomitant]
     Indication: NEOPLASM MALIGNANT
  3. ZETIA [Concomitant]
  4. TOPROL-XL [Concomitant]
  5. SINGULAIR [Concomitant]
     Indication: ASTHMA
  6. ASPIRIN [Concomitant]
  7. POTASSIUM CHLORIDE [Concomitant]
  8. ADVAIR DISKUS 100/50 [Concomitant]
     Indication: ASTHMA
  9. FLOMAX [Concomitant]
     Indication: BENIGN PROSTATIC HYPERPLASIA
  10. CENTRUM [Concomitant]
  11. IPRATROPIUM + ALBUTEROL [Concomitant]
     Indication: ASTHMA
  12. OMEPRAZOLE [Concomitant]
  13. DETROL LA [Concomitant]
  14. ENABLEX [Concomitant]

REACTIONS (3)
  - CEREBROVASCULAR ACCIDENT [None]
  - TONGUE BLACK HAIRY [None]
  - TOOTH DISCOLOURATION [None]
